FAERS Safety Report 4385894-0 (Version None)
Quarter: 2004Q2

REPORT INFORMATION
  Report Type: 
  Country: None (occurrence: None)
  Receive Date: 20040628
  Receipt Date: 20040615
  Transmission Date: 20050107
  Serious: Yes (Other)
  Sender: FDA-Public Use
  Company Number: GB-GLAXOSMITHKLINE-B0335838A

PATIENT
  Age: 70 Year
  Sex: Male

DRUGS (2)
  1. SEREVENT [Suspect]
     Indication: CHRONIC OBSTRUCTIVE AIRWAYS DISEASE
     Dosage: 25MCG UNKNOWN
     Dates: start: 20040505, end: 20040507
  2. MUCODYNE [Suspect]
     Dosage: 250MG PER DAY
     Route: 065
     Dates: start: 20040505, end: 20040507

REACTIONS (3)
  - ANXIETY [None]
  - CONFUSIONAL STATE [None]
  - TREMOR [None]
